FAERS Safety Report 9149085 (Version 1)
Quarter: 2013Q1

REPORT INFORMATION
  Report Type: Spontaneous
  Country: IT (occurrence: None)
  Receive Date: 20130131
  Receipt Date: 20130131
  Transmission Date: 20140127
  Serious: Yes (Hospitalization, Other)
  Sender: FDA-Public Use
  Company Number: 2013-01431

PATIENT
  Age: 9 Year
  Sex: Male

DRUGS (2)
  1. SALBUTAMOL [Suspect]
     Dates: start: 20130107, end: 20130114
  2. IPRATROPIUM BROMIDE [Suspect]
     Dates: start: 20130107, end: 20130114

REACTIONS (1)
  - Pupils unequal [None]
